FAERS Safety Report 7920774-2 (Version None)
Quarter: 2011Q4

REPORT INFORMATION
  Report Type: 
  Country: None (occurrence: None)
  Receive Date: 20111117
  Receipt Date: 20111114
  Transmission Date: 20120403
  Serious: Yes (Death, Other)
  Sender: FDA-Public Use
  Company Number: US-JNJFOC-2007333193

PATIENT
  Age: 3 Month
  Sex: Male
  Weight: 3.6 kg

DRUGS (6)
  1. DOXYLAMINE SUCCINATE [Suspect]
     Indication: PRODUCT USED FOR UNKNOWN INDICATION
     Dosage: DAILY DOSE TEXT: UNKNOWN
     Route: 065
  2. PSEUDOEPHEDRINE HCL [Suspect]
     Indication: PRODUCT USED FOR UNKNOWN INDICATION
     Dosage: DAILY DOSE TEXT: UNKNOWN
     Route: 065
  3. DEXTROMETHORPHAN HYDROBROMIDE [Suspect]
     Indication: PRODUCT USED FOR UNKNOWN INDICATION
     Dosage: DAILY DOSE TEXT: UNKNOWN
     Route: 065
  4. ACETAMINOPHEN [Suspect]
     Indication: PRODUCT USED FOR UNKNOWN INDICATION
     Dosage: DAILY DOSE TEXT: UNKNOWN
     Route: 065
  5. NYSTATIN [Concomitant]
     Dosage: DAILY DOSE TEXT: UNKNOWN
     Route: 048
  6. PSEUDOEPHEDRINE HCL [Suspect]
     Route: 065

REACTIONS (3)
  - TOXICITY TO VARIOUS AGENTS [None]
  - LOWER LIMB FRACTURE [None]
  - HYPOXIC-ISCHAEMIC ENCEPHALOPATHY [None]
